FAERS Safety Report 9246366 (Version 2)
Quarter: 2013Q2

REPORT INFORMATION
  Report Type: Spontaneous
  Country: US (occurrence: US)
  Receive Date: 20130422
  Receipt Date: 20130501
  Transmission Date: 20140414
  Serious: Yes (Other)
  Sender: FDA-Public Use
  Company Number: US-PFIZER INC-2013124600

PATIENT
  Age: 48 Year
  Sex: Male
  Weight: 68.03 kg

DRUGS (12)
  1. NEURONTIN [Suspect]
     Dosage: 600 MG, 4X/DAY
     Route: 048
  2. CELEBREX [Suspect]
     Dosage: 200 MG, 1X/DAY
     Route: 048
  3. PROTONIX [Suspect]
     Indication: PERFORATED ULCER
     Dosage: 40 MG, 1X/DAY
     Route: 048
  4. TUDORZA [Concomitant]
     Dosage: UNK, AS NEEDED
  5. DULERA [Concomitant]
     Dosage: UNK, AS NEEDED
  6. VENTOLIN [Concomitant]
     Dosage: UNK, AS NEEDED
  7. ULTRAM [Concomitant]
     Dosage: UNK
  8. HYDROCODONE [Concomitant]
     Dosage: UNK
  9. VALIUM [Concomitant]
     Dosage: UNK
  10. DALIRESP [Concomitant]
     Indication: DYSPNOEA
     Dosage: UNK
  11. VIIBRYD [Concomitant]
     Dosage: UNK
  12. AMITRIPTYLINE [Concomitant]
     Indication: INSOMNIA
     Dosage: UNK

REACTIONS (1)
  - Chronic obstructive pulmonary disease [Not Recovered/Not Resolved]
